FAERS Safety Report 8701721 (Version 3)
Quarter: 2013Q4

REPORT INFORMATION
  Report Type: Spontaneous
  Country: US (occurrence: US)
  Receive Date: 20120803
  Receipt Date: 20131101
  Transmission Date: 20140711
  Serious: No
  Sender: FDA-Public Use
  Company Number: US-009507513-1207USA009622

PATIENT
  Age: 63 Year
  Sex: Female
  Weight: 93.88 kg

DRUGS (6)
  1. JANUMET XR [Suspect]
     Indication: TYPE 2 DIABETES MELLITUS
     Dosage: 100/1000 MG, QD
     Route: 048
  2. JANUMET XR [Suspect]
     Dosage: 50/1000 MG, BID
     Route: 048
     Dates: end: 20120410
  3. JANUVIA [Suspect]
     Indication: TYPE 2 DIABETES MELLITUS
     Dosage: 100 MG, QD
     Route: 048
  4. METFORMIN [Concomitant]
  5. LANTUS [Concomitant]
  6. VICTOZA [Concomitant]

REACTIONS (1)
  - Blood glucose increased [Recovered/Resolved]
